FAERS Safety Report 11327240 (Version 2)
Quarter: 2015Q3

REPORT INFORMATION
  Report Type: Spontaneous
  Country: JP (occurrence: JP)
  Receive Date: 20150731
  Receipt Date: 20150928
  Transmission Date: 20151125
  Serious: Yes (Other)
  Sender: FDA-Public Use
  Company Number: JP-GUERBET LLC-1040881

PATIENT
  Age: 42 Year
  Sex: Female
  Weight: 40 kg

DRUGS (4)
  1. DEXCHLORPHENIRAMINE MALEATE. [Concomitant]
     Active Substance: DEXCHLORPHENIRAMINE MALEATE
     Dates: start: 20150717
  2. DOTAREM [Suspect]
     Active Substance: GADOTERATE MEGLUMINE
     Indication: NUCLEAR MAGNETIC RESONANCE IMAGING BRAIN
     Route: 042
     Dates: start: 20150717, end: 20150717
  3. HYDROCORTISONE SODIUM SUCCINATE [Concomitant]
     Active Substance: HYDROCORTISONE SODIUM SUCCINATE
     Dates: start: 20150717
  4. GLUCOSE/SODIUM CHLORIDE [Concomitant]
     Active Substance: DEXTROSE
     Dates: start: 20150717

REACTIONS (8)
  - Wheezing [Recovering/Resolving]
  - Nausea [Recovering/Resolving]
  - Contrast media allergy [Recovered/Resolved]
  - Cough [Recovering/Resolving]
  - Obstructive airways disorder [Recovering/Resolving]
  - Face oedema [Recovering/Resolving]
  - Vomiting [Recovering/Resolving]
  - Nasal congestion [Recovering/Resolving]

NARRATIVE: CASE EVENT DATE: 20150717
